FAERS Safety Report 25847876 (Version 1)
Quarter: 2025Q3

REPORT INFORMATION
  Report Type: Spontaneous
  Country: US (occurrence: US)
  Receive Date: 20250925
  Receipt Date: 20250925
  Transmission Date: 20251021
  Serious: Yes (Death, Life-Threatening, Hospitalization)
  Sender: MYLAN
  Company Number: US-MYLANLABS-2025M1080747

PATIENT
  Age: 66 Year
  Sex: Male

DRUGS (44)
  1. FENTANYL [Suspect]
     Active Substance: FENTANYL
     Indication: Sedative therapy
  2. FENTANYL [Suspect]
     Active Substance: FENTANYL
     Route: 065
  3. FENTANYL [Suspect]
     Active Substance: FENTANYL
     Route: 065
  4. FENTANYL [Suspect]
     Active Substance: FENTANYL
  5. LINEZOLID [Interacting]
     Active Substance: LINEZOLID
     Indication: Enterococcal infection
     Dosage: 600 MILLIGRAM; ONE HOUR INFUSION
     Route: 042
  6. LINEZOLID [Interacting]
     Active Substance: LINEZOLID
     Dosage: 600 MILLIGRAM; ONE HOUR INFUSION
  7. LINEZOLID [Interacting]
     Active Substance: LINEZOLID
     Dosage: 600 MILLIGRAM; ONE HOUR INFUSION
  8. LINEZOLID [Interacting]
     Active Substance: LINEZOLID
     Dosage: 600 MILLIGRAM; ONE HOUR INFUSION
     Route: 042
  9. LINEZOLID [Interacting]
     Active Substance: LINEZOLID
     Dosage: 600 MILLIGRAM, Q8H
     Route: 042
  10. LINEZOLID [Interacting]
     Active Substance: LINEZOLID
     Dosage: 600 MILLIGRAM, Q8H
  11. LINEZOLID [Interacting]
     Active Substance: LINEZOLID
     Dosage: 600 MILLIGRAM, Q8H
  12. LINEZOLID [Interacting]
     Active Substance: LINEZOLID
     Dosage: 600 MILLIGRAM, Q8H
     Route: 042
  13. LINEZOLID [Interacting]
     Active Substance: LINEZOLID
     Dosage: 2400 MILLIGRAM, QD
  14. LINEZOLID [Interacting]
     Active Substance: LINEZOLID
     Dosage: 2400 MILLIGRAM, QD
  15. LINEZOLID [Interacting]
     Active Substance: LINEZOLID
     Dosage: 2400 MILLIGRAM, QD
     Route: 042
  16. LINEZOLID [Interacting]
     Active Substance: LINEZOLID
     Dosage: 2400 MILLIGRAM, QD
     Route: 042
  17. LINEZOLID [Interacting]
     Active Substance: LINEZOLID
     Dosage: 1800 MILLIGRAM, QD
  18. LINEZOLID [Interacting]
     Active Substance: LINEZOLID
     Dosage: 1800 MILLIGRAM, QD
  19. LINEZOLID [Interacting]
     Active Substance: LINEZOLID
     Dosage: 1800 MILLIGRAM, QD
     Route: 042
  20. LINEZOLID [Interacting]
     Active Substance: LINEZOLID
     Dosage: 1800 MILLIGRAM, QD
     Route: 042
  21. AZTREONAM [Suspect]
     Active Substance: AZTREONAM
     Indication: Pseudomonas infection
  22. AZTREONAM [Suspect]
     Active Substance: AZTREONAM
     Route: 065
  23. AZTREONAM [Suspect]
     Active Substance: AZTREONAM
     Route: 065
  24. AZTREONAM [Suspect]
     Active Substance: AZTREONAM
  25. AVIBACTAM SODIUM\CEFTAZIDIME [Suspect]
     Active Substance: AVIBACTAM SODIUM\CEFTAZIDIME
     Indication: Pseudomonas infection
  26. AVIBACTAM SODIUM\CEFTAZIDIME [Suspect]
     Active Substance: AVIBACTAM SODIUM\CEFTAZIDIME
     Route: 065
  27. AVIBACTAM SODIUM\CEFTAZIDIME [Suspect]
     Active Substance: AVIBACTAM SODIUM\CEFTAZIDIME
     Route: 065
  28. AVIBACTAM SODIUM\CEFTAZIDIME [Suspect]
     Active Substance: AVIBACTAM SODIUM\CEFTAZIDIME
  29. KETAMINE [Interacting]
     Active Substance: KETAMINE
     Indication: Pain management
  30. KETAMINE [Interacting]
     Active Substance: KETAMINE
     Route: 065
  31. KETAMINE [Interacting]
     Active Substance: KETAMINE
     Route: 065
  32. KETAMINE [Interacting]
     Active Substance: KETAMINE
  33. ANIDULAFUNGIN [Suspect]
     Active Substance: ANIDULAFUNGIN
     Indication: Candida infection
  34. ANIDULAFUNGIN [Suspect]
     Active Substance: ANIDULAFUNGIN
     Route: 065
  35. ANIDULAFUNGIN [Suspect]
     Active Substance: ANIDULAFUNGIN
     Route: 065
  36. ANIDULAFUNGIN [Suspect]
     Active Substance: ANIDULAFUNGIN
  37. PROPOFOL [Concomitant]
     Active Substance: PROPOFOL
     Indication: Sedative therapy
  38. PROPOFOL [Concomitant]
     Active Substance: PROPOFOL
     Route: 065
  39. PROPOFOL [Concomitant]
     Active Substance: PROPOFOL
     Route: 065
  40. PROPOFOL [Concomitant]
     Active Substance: PROPOFOL
  41. NOREPINEPHRINE [Concomitant]
     Active Substance: NOREPINEPHRINE
     Indication: Vasopressive therapy
  42. NOREPINEPHRINE [Concomitant]
     Active Substance: NOREPINEPHRINE
     Route: 065
  43. NOREPINEPHRINE [Concomitant]
     Active Substance: NOREPINEPHRINE
     Route: 065
  44. NOREPINEPHRINE [Concomitant]
     Active Substance: NOREPINEPHRINE

REACTIONS (4)
  - Drug level decreased [Recovered/Resolved]
  - Drug interaction [Recovered/Resolved]
  - Adrenergic syndrome [Recovered/Resolved]
  - Drug ineffective [Fatal]
